FAERS Safety Report 9588233 (Version 1)
Quarter: 2013Q4

REPORT INFORMATION
  Report Type: Spontaneous
  Country: US (occurrence: US)
  Receive Date: 20131003
  Receipt Date: 20131003
  Transmission Date: 20140711
  Serious: No
  Sender: FDA-Public Use
  Company Number: US-AMGEN-USASP2012063365

PATIENT
  Age: 60 Year
  Sex: Female

DRUGS (9)
  1. ENBREL [Suspect]
     Indication: PRODUCT USED FOR UNKNOWN INDICATION
     Dosage: 25 MG, 2 TIMES/WK
     Route: 058
  2. ASA [Concomitant]
     Dosage: 81 MG EC, UNK
  3. AXID                               /00867001/ [Concomitant]
     Dosage: 300 MG, UNK
  4. AMLODIPIN                          /00972401/ [Concomitant]
     Dosage: 10 MG, UNK
  5. ZOLOFT [Concomitant]
     Dosage: 25 MG, UNK
  6. METFORMIN [Concomitant]
     Dosage: 500 MG, UNK
  7. TRAMADOL HCL [Concomitant]
     Dosage: 50 MG, UNK
  8. GLIMEPIRIDE [Concomitant]
     Dosage: 1 MG, UNK
  9. XANAX [Concomitant]
     Dosage: 0.5 MG, UNK

REACTIONS (3)
  - Malaise [Unknown]
  - Hypotension [Unknown]
  - Syncope [Unknown]
